FAERS Safety Report 17566518 (Version 6)
Quarter: 2020Q3

REPORT INFORMATION
  Report Type: Spontaneous
  Country: US (occurrence: US)
  Receive Date: 20200320
  Receipt Date: 20200828
  Transmission Date: 20201102
  Serious: Yes (Disabling, Other)
  Sender: FDA-Public Use
  Company Number: NVSC2020US078277

PATIENT
  Age: 78 Year
  Sex: Male

DRUGS (5)
  1. BEOVU [Suspect]
     Active Substance: BROLUCIZUMAB-DBLL
     Dosage: 6 MG, QMO
     Route: 031
     Dates: start: 20200108
  2. BEOVU [Suspect]
     Active Substance: BROLUCIZUMAB-DBLL
     Dosage: 6 MG, QMO
     Route: 047
     Dates: start: 20200212
  3. BEOVU [Suspect]
     Active Substance: BROLUCIZUMAB-DBLL
     Indication: NEOVASCULAR AGE-RELATED MACULAR DEGENERATION
     Dosage: 6 MG, QMO, LEFT EYE
     Route: 047
     Dates: start: 20191211
  4. AVASTIN [Suspect]
     Active Substance: BEVACIZUMAB
     Dosage: UNK, Q5W
     Route: 031
     Dates: start: 20200108
  5. AVASTIN [Suspect]
     Active Substance: BEVACIZUMAB
     Indication: PRODUCT USED FOR UNKNOWN INDICATION
     Dosage: UNK, Q5W
     Route: 031
     Dates: start: 20191211

REACTIONS (11)
  - Eye pain [Not Recovered/Not Resolved]
  - Photophobia [Not Recovered/Not Resolved]
  - Retinal artery occlusion [Not Recovered/Not Resolved]
  - Blindness unilateral [Not Recovered/Not Resolved]
  - Uveitis [Not Recovered/Not Resolved]
  - Ocular hyperaemia [Not Recovered/Not Resolved]
  - Eye inflammation [Unknown]
  - Visual impairment [Not Recovered/Not Resolved]
  - Retinal vasculitis [Recovered/Resolved with Sequelae]
  - Retinal ischaemia [Not Recovered/Not Resolved]
  - Retinal vascular occlusion [Not Recovered/Not Resolved]

NARRATIVE: CASE EVENT DATE: 20200212
